FAERS Safety Report 10528753 (Version 1)
Quarter: 2014Q4

REPORT INFORMATION
  Report Type: Spontaneous
  Country: US (occurrence: US)
  Receive Date: 20141020
  Receipt Date: 20141020
  Transmission Date: 20150528
  Serious: No
  Sender: FDA-Public Use
  Company Number: US-ASTRAZENECA-2014SE74372

PATIENT
  Age: 7 Year
  Sex: Female
  Weight: 27.2 kg

DRUGS (3)
  1. FLOVENT [Concomitant]
     Active Substance: FLUTICASONE PROPIONATE
  2. SYMBICORT [Suspect]
     Active Substance: BUDESONIDE\FORMOTEROL FUMARATE DIHYDRATE
     Route: 055
  3. RESCUE INHALER [Concomitant]

REACTIONS (3)
  - Asthma [Unknown]
  - Drug dose omission [Unknown]
  - Intentional product misuse [Unknown]
